FAERS Safety Report 18910716 (Version 6)
Quarter: 2025Q3

REPORT INFORMATION
  Report Type: Report from Study
  Country: US (occurrence: US)
  Receive Date: 20210218
  Receipt Date: 20250709
  Transmission Date: 20251020
  Serious: Yes (Hospitalization, Other)
  Sender: NOVARTIS
  Company Number: US-NOVARTISPH-NVSC2021US031447

PATIENT
  Sex: Male

DRUGS (3)
  1. PROMACTA [Suspect]
     Active Substance: ELTROMBOPAG OLAMINE
     Indication: Immune thrombocytopenia
     Dosage: 50 MG, QD
     Route: 048
  2. PROMACTA [Suspect]
     Active Substance: ELTROMBOPAG OLAMINE
     Dosage: 25 MG, QD
     Route: 048
  3. PROMACTA [Suspect]
     Active Substance: ELTROMBOPAG OLAMINE
     Dosage: UNK
     Route: 065

REACTIONS (7)
  - Coronavirus test positive [Unknown]
  - Pneumonia [Unknown]
  - Sputum discoloured [Unknown]
  - Asthenia [Unknown]
  - Dizziness [Unknown]
  - Peripheral swelling [Unknown]
  - Wrong technique in product usage process [Unknown]
